FAERS Safety Report 18596972 (Version 1)
Quarter: 2020Q4

REPORT INFORMATION
  Report Type: Spontaneous
  Country: TR (occurrence: TR)
  Receive Date: 20201209
  Receipt Date: 20201209
  Transmission Date: 20210114
  Serious: Yes (Other)
  Sender: FDA-Public Use
  Company Number: TR-ALLERGAN-2047297US

PATIENT
  Sex: Male

DRUGS (2)
  1. FLUOXETINE HCL UNK [Suspect]
     Active Substance: FLUOXETINE HYDROCHLORIDE
     Indication: OBSESSIVE-COMPULSIVE DISORDER
     Dosage: 10 MG, QD
  2. FLUOXETINE HCL UNK [Suspect]
     Active Substance: FLUOXETINE HYDROCHLORIDE
     Dosage: 5 MG, QD

REACTIONS (6)
  - Irritability [Recovering/Resolving]
  - Off label use [Unknown]
  - Logorrhoea [Recovering/Resolving]
  - Psychomotor hyperactivity [Recovering/Resolving]
  - Behaviour disorder [Recovering/Resolving]
  - Impulsive behaviour [Recovering/Resolving]
